FAERS Safety Report 6821342-6 (Version None)
Quarter: 2010Q3

REPORT INFORMATION
  Report Type: 
  Country: None (occurrence: None)
  Receive Date: 20100707
  Receipt Date: 20080509
  Transmission Date: 20110219
  Serious: No
  Sender: FDA-Public Use
  Company Number: US-PFIZER INC-2008040793

PATIENT
  Age: 75 Year
  Sex: Male
  Weight: 77.727 kg

DRUGS (3)
  1. ZOLOFT [Suspect]
     Indication: DEPRESSION
     Dates: start: 20080506
  2. CARDIOVASCULAR SYSTEM DRUGS [Concomitant]
  3. PROZAC [Concomitant]
     Dates: start: 20080101, end: 20080101

REACTIONS (1)
  - INSOMNIA [None]
